FAERS Safety Report 5994228-7 (Version None)
Quarter: 2008Q4

REPORT INFORMATION
  Report Type: 
  Country: None (occurrence: None)
  Receive Date: 20081212
  Receipt Date: 20080904
  Transmission Date: 20090506
  Serious: No
  Sender: FDA-Public Use
  Company Number: US-ABBOTT-08P-163-0474374-00

PATIENT
  Sex: Female
  Weight: 100.79 kg

DRUGS (15)
  1. HUMIRA [Suspect]
     Indication: RHEUMATOID ARTHRITIS
     Route: 058
     Dates: start: 20070101, end: 20071201
  2. HUMIRA [Suspect]
     Indication: PSORIATIC ARTHROPATHY
     Route: 058
     Dates: start: 20071201
  3. HUMIRA [Suspect]
     Indication: PSORIASIS
  4. LEFLUNOMIDE [Concomitant]
     Indication: RHEUMATOID ARTHRITIS
     Route: 048
  5. LEFLUNOMIDE [Concomitant]
     Indication: PSORIATIC ARTHROPATHY
  6. PREDNISONE TAB [Concomitant]
     Indication: RHEUMATOID ARTHRITIS
     Dosage: TAPERING MONTHLY
     Route: 048
  7. PREDNISONE TAB [Concomitant]
     Indication: PSORIATIC ARTHROPATHY
  8. GLYBURIDE [Concomitant]
     Indication: DIABETES MELLITUS
     Route: 048
  9. DIOVAN HCT [Concomitant]
     Indication: HYPERTENSION
     Dosage: 160/25MG
     Route: 048
  10. LOVASTATIN [Concomitant]
     Indication: BLOOD CHOLESTEROL INCREASED
     Route: 048
  11. FLUOXETINE [Concomitant]
     Indication: DEPRESSION
     Route: 048
  12. PANTOPRAZOLE SODIUM [Concomitant]
     Indication: GASTROOESOPHAGEAL REFLUX DISEASE
     Route: 048
  13. TYLOX [Concomitant]
     Indication: PAIN
     Dosage: UP TO 3 DAILY AS NEEDED, USUALLY 0.5 TAKE PILL
     Route: 048
  14. ORPHENADINE [Concomitant]
     Indication: SLEEP DISORDER THERAPY
     Route: 048
  15. DESOXIMETASONE [Concomitant]
     Indication: PSORIASIS
     Dosage: CREAM
     Route: 061

REACTIONS (6)
  - ARTHRITIS [None]
  - ASTHENIA [None]
  - BACK PAIN [None]
  - DEPRESSION [None]
  - FATIGUE [None]
  - MALAISE [None]
